FAERS Safety Report 9800045 (Version 2)
Quarter: 2014Q1

REPORT INFORMATION
  Report Type: Spontaneous
  Country: US (occurrence: US)
  Receive Date: 20140106
  Receipt Date: 20140106
  Transmission Date: 20141002
  Serious: Yes (Hospitalization)
  Sender: FDA-Public Use
  Company Number: US-GILEAD-2010-0032109

PATIENT
  Age: 53 Year
  Sex: Male

DRUGS (5)
  1. LETAIRIS [Suspect]
     Indication: PULMONARY ARTERIAL HYPERTENSION
     Route: 048
     Dates: start: 20071102
  2. VENTAVIS [Concomitant]
  3. LASIX [Concomitant]
  4. INDERAL [Concomitant]
  5. NOVOLIN N [Concomitant]

REACTIONS (1)
  - Abdominal pain upper [Unknown]
